FAERS Safety Report 21916383 (Version 1)
Quarter: 2023Q1

REPORT INFORMATION
  Report Type: Spontaneous
  Country: None (occurrence: BE)
  Receive Date: 20230126
  Receipt Date: 20230126
  Transmission Date: 20230417
  Serious: Yes (Other)
  Sender: FDA-Public Use
  Company Number: BE-Nova Laboratories Limited-2136994

PATIENT
  Age: 35 Year
  Sex: Male
  Weight: 72.10 kg

DRUGS (3)
  1. PURIXAN [Suspect]
     Active Substance: MERCAPTOPURINE
     Indication: T-cell type acute leukaemia
     Route: 048
     Dates: start: 20220301
  2. VINDESINE [Suspect]
     Active Substance: VINDESINE
     Route: 042
     Dates: start: 20220301
  3. METHOTREXATE [Suspect]
     Active Substance: METHOTREXATE
     Route: 042
     Dates: start: 20220301

REACTIONS (2)
  - Stevens-Johnson syndrome [Unknown]
  - Toxic skin eruption [Unknown]
